FAERS Safety Report 4805829-3 (Version None)
Quarter: 2005Q4

REPORT INFORMATION
  Report Type: 
  Country: None (occurrence: None)
  Receive Date: 20051021
  Receipt Date: 20051010
  Transmission Date: 20060501
  Serious: Yes (Hospitalization)
  Sender: FDA-Public Use
  Company Number: FR-JNJFOC-20051004139

PATIENT
  Age: 80 Year
  Sex: Male

DRUGS (12)
  1. TOPALGIC [Suspect]
     Route: 048
  2. TOPALGIC [Suspect]
     Route: 048
  3. DI-ANTALVIC [Suspect]
     Route: 048
  4. DI-ANTALVIC [Suspect]
     Indication: DRUG USE FOR UNKNOWN INDICATION
     Route: 048
  5. LEVOTHYROX [Concomitant]
     Route: 048
  6. ADANCOR [Concomitant]
     Route: 048
  7. ZOLOFT [Concomitant]
  8. KARDEGIC [Concomitant]
     Route: 048
  9. CORTANCYL [Concomitant]
     Route: 048
  10. ACTONEL [Concomitant]
     Route: 048
  11. CACIT D3 [Concomitant]
     Route: 048
  12. CACIT D3 [Concomitant]
     Route: 048

REACTIONS (2)
  - MYOCLONUS [None]
  - TREMOR [None]
